FAERS Safety Report 8876200 (Version 1)
Quarter: 2012Q4

REPORT INFORMATION
  Report Type: 
  Country: US (occurrence: US)
  Receive Date: 20121030
  Receipt Date: 20121030
  Transmission Date: 20130627
  Serious: No
  Sender: FDA-Public Use
  Company Number: US-BAYER-2012-112277

PATIENT
  Age: 46 Year
  Sex: Female

DRUGS (2)
  1. MIRENA [Suspect]
     Indication: CONTRACEPTION
     Dosage: 20 ?g/d, CONT
     Route: 015
     Dates: start: 20121012, end: 20121012
  2. BETADINE [Concomitant]

REACTIONS (4)
  - Device difficult to use [None]
  - Device difficult to use [None]
  - Procedural pain [None]
  - Anxiety [None]
